FAERS Safety Report 25619787 (Version 1)
Quarter: 2025Q3

REPORT INFORMATION
  Report Type: Spontaneous
  Country: CN (occurrence: CN)
  Receive Date: 20250729
  Receipt Date: 20250729
  Transmission Date: 20251020
  Serious: Yes (Other)
  Sender: BAUSCH AND LOMB
  Company Number: CN-BAUSCH-BH-2025-015301

PATIENT
  Age: 42 Year
  Sex: Male

DRUGS (9)
  1. AZATHIOPRINE [Suspect]
     Active Substance: AZATHIOPRINE
     Indication: Muscular weakness
     Route: 065
     Dates: end: 2020
  2. AZATHIOPRINE [Suspect]
     Active Substance: AZATHIOPRINE
     Indication: Rash erythematous
  3. AZATHIOPRINE [Suspect]
     Active Substance: AZATHIOPRINE
     Indication: Blood creatine phosphokinase increased
  4. METHYLPREDNISOLONE [Suspect]
     Active Substance: METHYLPREDNISOLONE
     Indication: Muscular weakness
     Route: 065
     Dates: end: 2020
  5. METHYLPREDNISOLONE [Suspect]
     Active Substance: METHYLPREDNISOLONE
     Indication: Rash erythematous
     Dosage: OVER THE NEXT 6YEARS
     Route: 065
     Dates: end: 2020
  6. METHYLPREDNISOLONE [Suspect]
     Active Substance: METHYLPREDNISOLONE
     Indication: Blood creatine phosphokinase increased
  7. METHOTREXATE [Suspect]
     Active Substance: METHOTREXATE
     Indication: Muscular weakness
     Route: 065
     Dates: end: 2020
  8. METHOTREXATE [Suspect]
     Active Substance: METHOTREXATE
     Indication: Rash erythematous
  9. METHOTREXATE [Suspect]
     Active Substance: METHOTREXATE
     Indication: Blood creatine phosphokinase increased

REACTIONS (3)
  - Osteonecrosis [Unknown]
  - Treatment noncompliance [Unknown]
  - Therapy partial responder [Unknown]

NARRATIVE: CASE EVENT DATE: 20200101
